FAERS Safety Report 4659185-4 (Version None)
Quarter: 2005Q2

REPORT INFORMATION
  Report Type: 
  Country: None (occurrence: None)
  Receive Date: 20050510
  Receipt Date: 20050426
  Transmission Date: 20051028
  Serious: Yes (Life-Threatening, Hospitalization)
  Sender: FDA-Public Use
  Company Number: 2004-0007318

PATIENT
  Age: 57 Year
  Sex: Male
  Weight: 69 kg

DRUGS (14)
  1. EMTRIVA [Suspect]
     Indication: HIV INFECTION
     Dosage: 200 MG, 1 IN 1 D, ORAL
     Route: 048
     Dates: start: 20060814, end: 20040530
  2. EMTRIVA [Suspect]
     Indication: HIV INFECTION
     Dosage: 200 MG, 1 IN 1 D, ORAL
     Route: 048
     Dates: start: 20040602
  3. KALETRA [Suspect]
     Indication: HIV INFECTION
     Dosage: 2 IN 1 D, ORAL
     Route: 048
     Dates: start: 20030814, end: 20040530
  4. KALETRA [Suspect]
     Indication: HIV INFECTION
     Dosage: 2 IN 1 D, ORAL
     Route: 048
     Dates: start: 20040602
  5. TENOFOVIR (TENOFOVIR) (300 MG) [Concomitant]
  6. NITROGLYCERIN [Concomitant]
  7. BACTRIM [Concomitant]
  8. COUMADIN [Concomitant]
  9. PRAVACHOL [Concomitant]
  10. NEURONTIN [Concomitant]
  11. NEXIUM [Concomitant]
  12. IMODIUM [Concomitant]
  13. DIFLUCAN [Concomitant]
  14. TOPROL-XL [Concomitant]

REACTIONS (17)
  - ACTIVATED PARTIAL THROMBOPLASTIN TIME PROLONGED [None]
  - AORTIC VALVE INCOMPETENCE [None]
  - CARDIAC FAILURE [None]
  - CHEST PAIN [None]
  - CHOLELITHIASIS [None]
  - GASTRITIS [None]
  - HICCUPS [None]
  - INTERNATIONAL NORMALISED RATIO INCREASED [None]
  - LIVER SCAN ABNORMAL [None]
  - MITRAL VALVE CALCIFICATION [None]
  - OESOPHAGEAL HAEMORRHAGE [None]
  - PROTHROMBIN TIME PROLONGED [None]
  - RESPIRATORY RATE INCREASED [None]
  - TRICUSPID VALVE INCOMPETENCE [None]
  - VARICES OESOPHAGEAL [None]
  - VENTRICULAR DYSKINESIA [None]
  - VENTRICULAR HYPERTROPHY [None]
